FAERS Safety Report 6064936-0 (Version None)
Quarter: 2009Q1

REPORT INFORMATION
  Report Type: 
  Country: None (occurrence: None)
  Receive Date: 20090204
  Receipt Date: 20090130
  Transmission Date: 20090719
  Serious: Yes (Other)
  Sender: FDA-Public Use
  Company Number: US-MERCK-0902USA00057

PATIENT
  Age: 7 Year
  Sex: Male

DRUGS (7)
  1. SINGULAIR [Suspect]
     Indication: ASTHMA
     Route: 048
     Dates: end: 20090128
  2. SINGULAIR [Suspect]
     Route: 048
     Dates: start: 20070101
  3. SINGULAIR [Suspect]
     Indication: HYPERSENSITIVITY
     Route: 048
     Dates: end: 20090128
  4. SINGULAIR [Suspect]
     Route: 048
     Dates: start: 20070101
  5. PULMICORT-100 [Concomitant]
     Route: 065
  6. XOPENEX [Concomitant]
     Route: 065
  7. NASONEX [Concomitant]
     Route: 065

REACTIONS (3)
  - ANGER [None]
  - DEPRESSED MOOD [None]
  - SUICIDAL IDEATION [None]
